FAERS Safety Report 24740838 (Version 2)
Quarter: 2024Q4

REPORT INFORMATION
  Report Type: Spontaneous
  Country: US (occurrence: US)
  Receive Date: 20241217
  Receipt Date: 20241217
  Transmission Date: 20250115
  Serious: Yes (Other)
  Sender: AMGEN
  Company Number: US-AMGEN-USASP2024244070

PATIENT

DRUGS (1)
  1. BEVACIZUMAB [Suspect]
     Active Substance: BEVACIZUMAB
     Indication: Retinal neovascularisation
     Dosage: 1.25 MILLIGRAM

REACTIONS (9)
  - Endophthalmitis [Unknown]
  - Vitreous haemorrhage [Unknown]
  - Retinal neovascularisation [Unknown]
  - Macular degeneration [Unknown]
  - Rhegmatogenous retinal detachment [Unknown]
  - Drug effective for unapproved indication [Unknown]
  - Drug ineffective for unapproved indication [Unknown]
  - Eye inflammation [Unknown]
  - Off label use [Unknown]
